FAERS Safety Report 9409542 (Version 2)
Quarter: 2013Q3

REPORT INFORMATION
  Report Type: Spontaneous
  Country: US (occurrence: US)
  Receive Date: 20130719
  Receipt Date: 20130801
  Transmission Date: 20140515
  Serious: Yes (Other)
  Sender: FDA-Public Use
  Company Number: US-JNJFOC-20130708033

PATIENT
  Sex: Female

DRUGS (5)
  1. DOXORUBICIN [Suspect]
     Indication: BREAST CANCER
     Route: 042
  2. CYCLOPHOSPHAMIDE [Suspect]
     Indication: BREAST CANCER
     Route: 065
  3. DOCETAXEL [Suspect]
     Indication: BREAST CANCER
     Route: 065
  4. BEVACIZUMAB [Suspect]
     Indication: BREAST CANCER
     Route: 065
  5. PLACEBO [Suspect]
     Indication: BREAST CANCER
     Route: 065

REACTIONS (2)
  - Cardiac failure [Unknown]
  - Impaired healing [Unknown]
